FAERS Safety Report 12805517 (Version 1)
Quarter: 2016Q4

REPORT INFORMATION
  Report Type: Report from Study
  Country: CA (occurrence: CA)
  Receive Date: 20161004
  Receipt Date: 20161004
  Transmission Date: 20170207
  Serious: Yes (Other)
  Sender: FDA-Public Use
  Company Number: CA-TEVA-678528ACC

PATIENT
  Age: 50 Year
  Sex: Female

DRUGS (10)
  1. MULTIVITAMIN [Concomitant]
     Active Substance: VITAMINS
  2. NIACINE [Concomitant]
  3. TIZANIDINE. [Concomitant]
     Active Substance: TIZANIDINE
  4. FUROSEMIDE. [Concomitant]
     Active Substance: FUROSEMIDE
  5. ZOPICLONE [Concomitant]
     Active Substance: ZOPICLONE
  6. PANCREATIC ENZYME [Concomitant]
  7. DOCUSATE [Concomitant]
     Active Substance: DOCUSATE
  8. HYDROMORPH CONTIN [Concomitant]
     Active Substance: HYDROMORPHONE
  9. COPAXONE [Suspect]
     Active Substance: GLATIRAMER ACETATE
     Indication: MULTIPLE SCLEROSIS
     Dosage: 20 MILLIGRAM/MILLILITERS DAILY;
     Route: 058
     Dates: start: 20150712
  10. POTASSIUM [Concomitant]
     Active Substance: POTASSIUM

REACTIONS (3)
  - Pneumonia staphylococcal [Recovering/Resolving]
  - Multiple sclerosis relapse [Recovering/Resolving]
  - Multiple sclerosis relapse [Recovering/Resolving]

NARRATIVE: CASE EVENT DATE: 201604
